FAERS Safety Report 9729942 (Version 1)
Quarter: 2013Q4

REPORT INFORMATION
  Report Type: Spontaneous
  Country: FI (occurrence: None)
  Receive Date: 20131203
  Receipt Date: 20131203
  Transmission Date: 20140711
  Serious: Yes (Other)
  Sender: FDA-Public Use
  Company Number: 2013P1021372

PATIENT
  Age: 61 Year
  Sex: Male

DRUGS (13)
  1. VANCOMYCIN [Suspect]
     Dosage: 1 GM; BID;
  2. RIFAMPICIN [Suspect]
     Dosage: 600 MG; QD;
  3. PANTOPRAZOLE [Suspect]
  4. MEROPENEM [Suspect]
     Dosage: 1 GM; TID;
  5. CLOXACILLIN [Suspect]
     Dosage: 2 GM; QID
  6. CEFUROXIME [Suspect]
     Dosage: 1.5 GM; TID;
  7. METRONIDAZOLE [Concomitant]
  8. LEVOFLOXACIN [Concomitant]
  9. NAPROXEN [Concomitant]
  10. PARACETAMOL [Concomitant]
  11. CODEINE PHOSPHATE [Concomitant]
  12. DAPTOMYCIN [Concomitant]
  13. METHYLPREDNISOLONE [Concomitant]

REACTIONS (2)
  - Drug reaction with eosinophilia and systemic symptoms [None]
  - Toxic epidermal necrolysis [None]
